FAERS Safety Report 13514860 (Version 5)
Quarter: 2017Q3

REPORT INFORMATION
  Report Type: Spontaneous
  Country: JP (occurrence: JP)
  Receive Date: 20170504
  Receipt Date: 20170822
  Transmission Date: 20171127
  Serious: Yes (Hospitalization, Other)
  Sender: FDA-Public Use
  Company Number: JP-BAYER-2017-079736

PATIENT
  Age: 49 Year
  Sex: Female
  Weight: 68 kg

DRUGS (7)
  1. NEXIUM [Concomitant]
     Active Substance: ESOMEPRAZOLE MAGNESIUM
     Indication: GASTRITIS
     Dosage: UNK
     Route: 048
     Dates: start: 20170319
  2. DIENOGEST [Suspect]
     Active Substance: DIENOGEST
     Indication: ADENOMYOSIS
     Dosage: 1 MG, BID
     Route: 048
     Dates: start: 20170207, end: 20170323
  3. EDARAVONE [Concomitant]
     Active Substance: EDARAVONE
     Indication: CEREBRAL INFARCTION
     Dosage: UNK
     Route: 041
     Dates: start: 20170318
  4. HEPARIN SODIUM. [Suspect]
     Active Substance: HEPARIN SODIUM
     Indication: CEREBRAL INFARCTION
     Dosage: DAILY DOSE 10 KU
     Route: 041
     Dates: start: 20170318, end: 20170326
  5. BAYASPIRIN 100 MG [Suspect]
     Active Substance: ASPIRIN
     Indication: CEREBRAL INFARCTION
     Dosage: 100 MG, QD
     Route: 048
     Dates: start: 20170319
  6. HEPARIN SODIUM. [Suspect]
     Active Substance: HEPARIN SODIUM
     Indication: CEREBRAL INFARCTION
     Dosage: DAILY DOSE 5 KU
     Route: 041
     Dates: start: 20170327
  7. DIENOGEST [Suspect]
     Active Substance: DIENOGEST
     Indication: MENORRHAGIA

REACTIONS (5)
  - Cerebral infarction [Recovered/Resolved]
  - Labelled drug-disease interaction medication error [None]
  - Contraindicated drug prescribed [None]
  - Genital haemorrhage [Recovered/Resolved]
  - Anaemia [Recovering/Resolving]

NARRATIVE: CASE EVENT DATE: 201702
